FAERS Safety Report 6316264-3 (Version None)
Quarter: 2009Q3

REPORT INFORMATION
  Report Type: 
  Country: None (occurrence: None)
  Receive Date: 20090820
  Receipt Date: 20090810
  Transmission Date: 20100115
  Serious: Yes (Other)
  Sender: FDA-Public Use
  Company Number: US-NOVOPROD-282455

PATIENT
  Sex: Male
  Weight: 46 kg

DRUGS (2)
  1. NOVOSEVEN [Suspect]
     Indication: FACTOR VII DEFICIENCY
     Dosage: 2.2 MG TWO TIMES A WEEK OR UP TO DAILY WITH ACTIVE BLEED
  2. NOVOSEVEN [Suspect]
     Dosage: UNKNOWN, THREE TIMES A WEEK

REACTIONS (1)
  - DRUG INEFFECTIVE [None]
